FAERS Safety Report 9455257 (Version 1)
Quarter: 2013Q3

REPORT INFORMATION
  Report Type: Spontaneous
  Country: FR (occurrence: FR)
  Receive Date: 20130813
  Receipt Date: 20130813
  Transmission Date: 20140515
  Serious: Yes (Hospitalization)
  Sender: FDA-Public Use
  Company Number: FR-JNJFOC-20130801736

PATIENT
  Age: 61 Year
  Sex: Male

DRUGS (14)
  1. DUROGESIC [Suspect]
     Indication: PAIN
     Route: 062
  2. DUROGESIC [Suspect]
     Indication: PAIN
     Dosage: 16.8MG/42 CM2
     Route: 062
     Dates: end: 20130614
  3. ZELITREX [Suspect]
     Indication: HERPES VIRUS INFECTION
     Route: 048
  4. EUPRESSYL [Suspect]
     Indication: HYPERTENSION
     Route: 048
  5. LOXEN [Suspect]
     Indication: HYPERTENSION
     Route: 048
  6. KARDEGIC [Suspect]
     Indication: PRODUCT USED FOR UNKNOWN INDICATION
     Route: 048
  7. RIVOTRIL [Suspect]
     Indication: PRODUCT USED FOR UNKNOWN INDICATION
     Dosage: 10 DROPS ONCE A DAY (4 DROPS IN THE MORNING AND 6 IN THE EVENING)
     Route: 048
  8. XATRAL [Suspect]
     Indication: PRODUCT USED FOR UNKNOWN INDICATION
     Route: 048
  9. INEXIUM [Suspect]
     Indication: GASTROOESOPHAGEAL REFLUX DISEASE
     Route: 048
  10. TIORFAN [Suspect]
     Indication: DIARRHOEA
     Route: 048
  11. CARDENSIEL [Suspect]
     Indication: CARDIAC FAILURE
     Route: 065
  12. CYMBALTA [Suspect]
     Indication: PRODUCT USED FOR UNKNOWN INDICATION
     Route: 048
  13. CYMBALTA [Suspect]
     Indication: PRODUCT USED FOR UNKNOWN INDICATION
     Route: 048
  14. WELLVONE [Concomitant]
     Indication: PRODUCT USED FOR UNKNOWN INDICATION
     Dosage: 2 SPOONS ONCE A DAY
     Route: 048

REACTIONS (6)
  - Coma [Recovered/Resolved with Sequelae]
  - Grand mal convulsion [Recovered/Resolved]
  - Confusional state [Recovering/Resolving]
  - Extrapyramidal disorder [Recovering/Resolving]
  - Overdose [Unknown]
  - Incorrect dose administered [Unknown]
